FAERS Safety Report 15075968 (Version 1)
Quarter: 2018Q2

REPORT INFORMATION
  Report Type: Spontaneous
  Country: US (occurrence: US)
  Receive Date: 20180607
  Receipt Date: 20180607
  Transmission Date: 20180711
  Serious: Yes (Life-Threatening, Disabling)
  Sender: FDA-Public Use
  Company Number: None

PATIENT
  Age: 31 Year
  Sex: Female
  Weight: 63 kg

DRUGS (1)
  1. CLINDAMYCIN. [Suspect]
     Active Substance: CLINDAMYCIN
     Indication: MASTITIS
     Route: 048
     Dates: start: 20171222, end: 20180104

REACTIONS (2)
  - Disease recurrence [None]
  - Clostridium difficile infection [None]

NARRATIVE: CASE EVENT DATE: 20180108
